FAERS Safety Report 10204175 (Version 1)
Quarter: 2014Q2

REPORT INFORMATION
  Report Type: Spontaneous
  Country: US (occurrence: None)
  Receive Date: 20140527
  Receipt Date: 20140527
  Transmission Date: 20141212
  Serious: Yes (Death)
  Sender: FDA-Public Use
  Company Number: None

PATIENT
  Age: 7 Year
  Sex: Male
  Weight: 20.41 kg

DRUGS (1)
  1. PEPTO BISMOL [Suspect]
     Indication: VOMITING
     Dates: start: 20131230

REACTIONS (2)
  - Reye^s syndrome [None]
  - Off label use [None]
